FAERS Safety Report 11795446 (Version 2)
Quarter: 2015Q4

REPORT INFORMATION
  Report Type: Spontaneous
  Country: IT (occurrence: IT)
  Receive Date: 20151202
  Receipt Date: 20151210
  Transmission Date: 20160305
  Serious: Yes (Death, Hospitalization, Other)
  Sender: FDA-Public Use
  Company Number: IT-GILEAD-2015-0184173

PATIENT
  Age: 47 Year
  Sex: Male

DRUGS (6)
  1. DACLATASVIR. [Concomitant]
     Active Substance: DACLATASVIR
     Indication: HEPATITIS C
  2. LACTULOSE. [Concomitant]
     Active Substance: LACTULOSE
  3. LASIX [Concomitant]
     Active Substance: FUROSEMIDE
  4. ALBUMIN [Concomitant]
     Active Substance: ALBUMIN (HUMAN)
  5. SOVALDI [Suspect]
     Active Substance: SOFOSBUVIR
     Indication: HEPATITIS C
     Dosage: UNK
     Route: 065
     Dates: start: 20151023, end: 20151119
  6. RIBAVIRIN. [Concomitant]
     Active Substance: RIBAVIRIN
     Indication: HEPATITIS C
     Dosage: UNK

REACTIONS (8)
  - Splenic thrombosis [Fatal]
  - Jaundice [Unknown]
  - Ascites [Unknown]
  - Renal failure [Unknown]
  - Hepatic failure [Unknown]
  - Encephalopathy [Unknown]
  - Coagulation factor deficiency [Unknown]
  - Thrombocytopenia [Unknown]

NARRATIVE: CASE EVENT DATE: 20151119
